FAERS Safety Report 13629705 (Version 1)
Quarter: 2017Q2

REPORT INFORMATION
  Report Type: Spontaneous
  Country: US (occurrence: US)
  Receive Date: 20170531
  Receipt Date: 20170531
  Transmission Date: 20170830
  Serious: No
  Sender: FDA-Public Use
  Company Number: US-ASTELLAS-1236339

PATIENT
  Sex: Female

DRUGS (14)
  1. TARCEVA [Suspect]
     Active Substance: ERLOTINIB HYDROCHLORIDE
     Indication: MALIGNANT RESPIRATORY TRACT NEOPLASM
     Route: 065
     Dates: start: 20120614
  2. LORAZEPAM. [Concomitant]
     Active Substance: LORAZEPAM
  3. IMODIUM [Concomitant]
     Active Substance: LOPERAMIDE HYDROCHLORIDE
  4. TARCEVA [Suspect]
     Active Substance: ERLOTINIB HYDROCHLORIDE
     Route: 048
     Dates: start: 20111223
  5. NORCO [Concomitant]
     Active Substance: ACETAMINOPHEN\HYDROCODONE BITARTRATE
  6. LASIX [Concomitant]
     Active Substance: FUROSEMIDE
  7. AMIODARONE [Concomitant]
     Active Substance: AMIODARONE
  8. GLUCOSAMINE HYDROCHLORIDE [Concomitant]
     Active Substance: GLUCOSAMINE HYDROCHLORIDE
  9. TARCEVA [Suspect]
     Active Substance: ERLOTINIB HYDROCHLORIDE
     Route: 048
     Dates: start: 20130317
  10. SYNTHROID [Concomitant]
     Active Substance: LEVOTHYROXINE SODIUM
  11. VITAMIN C [Concomitant]
     Active Substance: ASCORBIC ACID
  12. LOVAZA [Concomitant]
     Active Substance: OMEGA-3-ACID ETHYL ESTERS
  13. CARDIZEM [Concomitant]
     Active Substance: DILTIAZEM HYDROCHLORIDE
  14. SIMETHICONE (DIMETHICONE) [Concomitant]
     Active Substance: DIMETHICONE

REACTIONS (6)
  - Decreased appetite [Not Recovered/Not Resolved]
  - Growth of eyelashes [Not Recovered/Not Resolved]
  - Madarosis [Not Recovered/Not Resolved]
  - Dry skin [Unknown]
  - Hair growth abnormal [Not Recovered/Not Resolved]
  - Abdominal pain upper [Unknown]
